FAERS Safety Report 4310423-7 (Version None)
Quarter: 2004Q1

REPORT INFORMATION
  Report Type: 
  Country: None (occurrence: None)
  Receive Date: 20040303
  Receipt Date: 20040129
  Transmission Date: 20041129
  Serious: Yes (Hospitalization)
  Sender: FDA-Public Use
  Company Number: PHBS2004JP01436

PATIENT
  Age: 66 Year
  Sex: Male
  Weight: 65 kg

DRUGS (10)
  1. DIOVAN [Suspect]
     Indication: HYPERTENSION
     Dosage: 80 MG/DAY
     Route: 048
     Dates: start: 20031029, end: 20031120
  2. LOCHOL [Concomitant]
     Indication: HYPERCHOLESTEROLAEMIA
     Dosage: 20 MG/DAY
     Route: 048
     Dates: start: 20031029, end: 20031120
  3. AMLODIN [Concomitant]
     Dosage: 5 MG, UNK
     Route: 048
     Dates: start: 20031029, end: 20031223
  4. PLETAL [Suspect]
     Dosage: 200 MG/DAY
     Route: 048
     Dates: start: 20031121
  5. PANALDINE [Suspect]
     Dosage: 200 MG/DAY
     Route: 048
     Dates: start: 20031029, end: 20031120
  6. SIGMART [Concomitant]
     Dosage: 15 MG, UNK
     Route: 048
     Dates: start: 20031029
  7. MUCOSTA [Concomitant]
     Dosage: 300 MG, UNK
     Route: 048
     Dates: start: 20031029
  8. BUFFERIN [Concomitant]
     Dosage: 81 MG, UNK
     Route: 048
     Dates: start: 20031029
  9. CONIEL [Concomitant]
     Dosage: 4 MG, UNK
     Route: 048
     Dates: start: 20031223
  10. KERLONG [Concomitant]
     Dosage: 10 MG, UNK
     Route: 048
     Dates: start: 20031223

REACTIONS (18)
  - ALANINE AMINOTRANSFERASE INCREASED [None]
  - ANGIOPLASTY [None]
  - ASPARTATE AMINOTRANSFERASE INCREASED [None]
  - BLOOD CREATININE INCREASED [None]
  - CARDIAC PROCEDURE COMPLICATION [None]
  - EOSINOPHIL COUNT INCREASED [None]
  - FAT EMBOLISM [None]
  - HAEMATOCHEZIA [None]
  - HAEMODIALYSIS [None]
  - LARGE INTESTINAL ULCER [None]
  - LIVEDO RETICULARIS [None]
  - MALAISE [None]
  - MYOCARDIAL ISCHAEMIA [None]
  - NAUSEA [None]
  - NEPHRITIS INTERSTITIAL [None]
  - RENAL FAILURE ACUTE [None]
  - RENAL TUBULAR NECROSIS [None]
  - VOMITING [None]
